FAERS Safety Report 4460919-2 (Version None)
Quarter: 2004Q3

REPORT INFORMATION
  Report Type: 
  Country: None (occurrence: None)
  Receive Date: 20040928
  Receipt Date: 20040610
  Transmission Date: 20050211
  Serious: No
  Sender: FDA-Public Use
  Company Number: US-GLAXOSMITHKLINE-A0514156A

PATIENT
  Age: 75 Year
  Sex: Female

DRUGS (8)
  1. ADVAIR DISKUS 100/50 [Suspect]
     Indication: ASTHMA
     Dosage: 2PUFF TWICE PER DAY
     Route: 055
     Dates: start: 20031201
  2. POTASSIUM [Concomitant]
  3. FUROSEMIDE [Concomitant]
  4. ZOCOR [Concomitant]
  5. ISOSORBIDE [Concomitant]
  6. COMBIVENT [Concomitant]
  7. IPRATROPIUM BROMIDE [Concomitant]
     Route: 055
  8. ALBUTEROL [Concomitant]

REACTIONS (1)
  - MEDICATION ERROR [None]
